FAERS Safety Report 16660879 (Version 3)
Quarter: 2019Q3

REPORT INFORMATION
  Report Type: Spontaneous
  Country: US (occurrence: US)
  Receive Date: 20190802
  Receipt Date: 20190924
  Transmission Date: 20191004
  Serious: Yes (Other)
  Sender: FDA-Public Use
  Company Number: US-PFIZER INC-2019023676

PATIENT
  Age: 61 Year
  Sex: Female
  Weight: 72.56 kg

DRUGS (2)
  1. LYRICA [Suspect]
     Active Substance: PREGABALIN
     Indication: SPONDYLOARTHROPATHY
  2. LYRICA [Suspect]
     Active Substance: PREGABALIN
     Indication: SPINAL OSTEOARTHRITIS
     Dosage: 50 MG, 3X/DAY (1 CAPSULE THREE TIMES A DAY)
     Route: 048

REACTIONS (3)
  - Off label use [Unknown]
  - Drug dependence [Unknown]
  - Product use in unapproved indication [Unknown]
